FAERS Safety Report 24586592 (Version 2)
Quarter: 2024Q4

REPORT INFORMATION
  Report Type: Spontaneous
  Country: US (occurrence: US)
  Receive Date: 20241107
  Receipt Date: 20241113
  Transmission Date: 20250115
  Serious: Yes (Hospitalization, Other)
  Sender: BRISTOL-MYERS SQUIBB COMPANY
  Company Number: US-BRISTOL-MYERS SQUIBB COMPANY-2024-172022

PATIENT
  Age: 81 Year
  Sex: Male
  Weight: 79.38 kg

DRUGS (2)
  1. KRAZATI [Suspect]
     Active Substance: ADAGRASIB
     Indication: Lymphoma
     Route: 048
     Dates: start: 20241001, end: 20241018
  2. KRAZATI [Suspect]
     Active Substance: ADAGRASIB
     Dosage: 200MG IN THE MORNING AND 400MG IN EVENING
     Route: 048
     Dates: start: 202410

REACTIONS (8)
  - Cerebrovascular accident [Recovered/Resolved]
  - Dysarthria [Recovered/Resolved]
  - Gait disturbance [Recovered/Resolved]
  - Tremor [Recovered/Resolved]
  - Weight decreased [Recovered/Resolved]
  - Off label use [Unknown]
  - Sleep disorder [Unknown]
  - Food craving [Unknown]

NARRATIVE: CASE EVENT DATE: 20241001
